FAERS Safety Report 20389152 (Version 1)
Quarter: 2022Q1

REPORT INFORMATION
  Report Type: Spontaneous
  Country: AT (occurrence: AT)
  Receive Date: 20220128
  Receipt Date: 20220128
  Transmission Date: 20220423
  Serious: No
  Sender: FDA-Public Use
  Company Number: AT-MLMSERVICE-20211227-3288679-1

PATIENT
  Age: 76 Year
  Sex: Female

DRUGS (1)
  1. LAMOTRIGINE [Suspect]
     Active Substance: LAMOTRIGINE
     Indication: Subarachnoid haemorrhage
     Dosage: 50 MILLIGRAM, QD
     Route: 065

REACTIONS (1)
  - Paraesthesia [Unknown]
